FAERS Safety Report 18751333 (Version 1)
Quarter: 2021Q1

REPORT INFORMATION
  Report Type: Spontaneous
  Country: US (occurrence: US)
  Receive Date: 20210118
  Receipt Date: 20210118
  Transmission Date: 20210419
  Serious: No
  Sender: FDA-Public Use
  Company Number: US-SA-2021SA012242

PATIENT
  Sex: Male

DRUGS (1)
  1. DUPIXENT [Suspect]
     Active Substance: DUPILUMAB
     Indication: DERMATITIS ATOPIC
     Dosage: 200 MG, QOW; UNDER THE SKIN
     Route: 058
     Dates: start: 20200723

REACTIONS (4)
  - Ocular hyperaemia [Unknown]
  - Periorbital swelling [Unknown]
  - Lacrimation increased [Unknown]
  - Eye pruritus [Unknown]
